FAERS Safety Report 8776648 (Version 1)
Quarter: 2012Q4

REPORT INFORMATION
  Report Type: 
  Country: ZA (occurrence: ZA)
  Receive Date: 20120910
  Receipt Date: 20120910
  Transmission Date: 20130627
  Serious: Yes (Death, Hospitalization, Other)
  Sender: FDA-Public Use
  Company Number: PHHY2010ZA094545

PATIENT
  Sex: Male

DRUGS (1)
  1. GLIVEC [Suspect]
     Indication: CHRONIC MYELOID LEUKAEMIA
     Dates: start: 20100705

REACTIONS (8)
  - HIV infection [Fatal]
  - Prerenal failure [Fatal]
  - Diarrhoea [Fatal]
  - Shock [Unknown]
  - Tuberculosis [Recovering/Resolving]
  - Blast crisis in myelogenous leukaemia [Unknown]
  - Ascites [Unknown]
  - Sepsis [Unknown]
